FAERS Safety Report 23865768 (Version 1)
Quarter: 2024Q2

REPORT INFORMATION
  Report Type: Spontaneous
  Country: US (occurrence: US)
  Receive Date: 20240517
  Receipt Date: 20240517
  Transmission Date: 20240715
  Serious: No
  Sender: FDA-Public Use
  Company Number: US-HIKMA PHARMACEUTICALS USA INC.-US-H14001-23-01138

PATIENT
  Sex: Female

DRUGS (1)
  1. PREDNISONE [Suspect]
     Active Substance: PREDNISONE
     Indication: Product used for unknown indication
     Dosage: UNKNOWN
     Route: 065

REACTIONS (10)
  - Joint stiffness [Unknown]
  - Nausea [Unknown]
  - Dizziness [Unknown]
  - Back pain [Unknown]
  - Pyrexia [Unknown]
  - Sensitive skin [Unknown]
  - Arthralgia [Unknown]
  - Headache [Unknown]
  - Adverse event [Unknown]
  - Drug ineffective [Unknown]
